FAERS Safety Report 7723486-3 (Version None)
Quarter: 2011Q3

REPORT INFORMATION
  Report Type: 
  Country: None (occurrence: None)
  Receive Date: 20110901
  Receipt Date: 20110830
  Transmission Date: 20111222
  Serious: No
  Sender: FDA-Public Use
  Company Number: US-PFIZER INC-2011202473

PATIENT
  Age: 45 Year
  Sex: Male
  Weight: 54 kg

DRUGS (1)
  1. VIAGRA [Suspect]
     Indication: ERECTILE DYSFUNCTION
     Dosage: 50 MG, DAILY
     Dates: start: 20110101

REACTIONS (7)
  - TESTICULAR SWELLING [None]
  - TESTICULAR DISORDER [None]
  - EJACULATION DISORDER [None]
  - DRUG INEFFECTIVE [None]
  - PENILE ERYTHEMA [None]
  - MUSCULOSKELETAL STIFFNESS [None]
  - SEMEN VISCOSITY INCREASED [None]
